FAERS Safety Report 9021880 (Version 2)
Quarter: 2013Q1

REPORT INFORMATION
  Report Type: Spontaneous
  Country: US (occurrence: US)
  Receive Date: 20130118
  Receipt Date: 20130318
  Transmission Date: 20140127
  Serious: No
  Sender: FDA-Public Use
  Company Number: US-VERTEX PHARMACEUTICALS INC.-2013-000749

PATIENT
  Sex: Female

DRUGS (8)
  1. INCIVEK [Suspect]
     Indication: HEPATITIS C
     Dosage: 750 MG, TID
     Route: 048
     Dates: start: 20121220, end: 20130103
  2. PEGASYS [Suspect]
     Indication: HEPATITIS C
     Dosage: 180 ?G, QW
     Route: 058
     Dates: start: 20121220, end: 20121228
  3. RIBASPHERE [Suspect]
     Indication: HEPATITIS C
     Dosage: 600 MG, BID
     Route: 048
     Dates: start: 20121220, end: 20130103
  4. SUBOXONE [Concomitant]
     Dosage: UNK
     Dates: start: 20121213
  5. PRILOSEC                           /00661201/ [Concomitant]
     Dosage: UNK
     Dates: start: 20121213
  6. TRAZODONE                          /00447702/ [Concomitant]
     Dosage: UNK
     Dates: start: 20121213
  7. PRIMIDONE [Concomitant]
     Dosage: UNK
     Dates: start: 20121213
  8. LISINOPRIL [Concomitant]
     Dosage: UNK
     Dates: start: 20121213

REACTIONS (1)
  - Vomiting [Recovered/Resolved]
